FAERS Safety Report 16950257 (Version 1)
Quarter: 2019Q4

REPORT INFORMATION
  Report Type: Spontaneous
  Country: US (occurrence: US)
  Receive Date: 20191023
  Receipt Date: 20191023
  Transmission Date: 20200122
  Serious: No
  Sender: FDA-Public Use
  Company Number: US-PFIZER INC-2019454929

PATIENT

DRUGS (1)
  1. PLEGISOL [Suspect]
     Active Substance: CALCIUM CHLORIDE\MAGNESIUM CHLORIDE\POTASSIUM CHLORIDE\SODIUM CHLORIDE
     Indication: CARDIOPLEGIA
     Dosage: 1600 ML, UNK(CONTAINED 160 MEQ KCL)

REACTIONS (1)
  - Drug ineffective [Unknown]
